FAERS Safety Report 4657142-5 (Version None)
Quarter: 2005Q2

REPORT INFORMATION
  Report Type: 
  Country: None (occurrence: None)
  Receive Date: 20050408
  Receipt Date: 20050202
  Transmission Date: 20051028
  Serious: No
  Sender: FDA-Public Use
  Company Number: 230749K05USA

PATIENT
  Age: 40 Year
  Sex: Female

DRUGS (2)
  1. REBIF [Suspect]
     Indication: MULTIPLE SCLEROSIS
  2. AVONEX [Suspect]
     Dosage: 30 MCG, NOT REPORTED, INTRAMUSCULAR
     Route: 030
     Dates: start: 20050201, end: 20050201

REACTIONS (1)
  - MEDICATION ERROR [None]
